FAERS Safety Report 15293828 (Version 1)
Quarter: 2018Q3

REPORT INFORMATION
  Report Type: Spontaneous
  Country: IT (occurrence: IT)
  Receive Date: 20180820
  Receipt Date: 20180820
  Transmission Date: 20181010
  Serious: Yes (Other)
  Sender: FDA-Public Use
  Company Number: IT-TEVA-2018-IT-944026

PATIENT
  Age: 60 Year
  Sex: Female

DRUGS (2)
  1. AMOXICILLIN. [Suspect]
     Active Substance: AMOXICILLIN
     Indication: CYSTITIS
     Dosage: 3 GRAM DAILY;
     Route: 048
     Dates: start: 20171118, end: 20171125
  2. CISTALGAN [Concomitant]
     Active Substance: FLAVOXATE HYDROCHLORIDE\PROPYPHENAZONE
     Indication: CYSTITIS
     Dosage: 1 DOSAGE FORMS DAILY;
     Route: 048
     Dates: start: 20171202, end: 20171202

REACTIONS (1)
  - Angioedema [Recovered/Resolved]

NARRATIVE: CASE EVENT DATE: 20171202
